FAERS Safety Report 7738373-4 (Version None)
Quarter: 2011Q3

REPORT INFORMATION
  Report Type: 
  Country: None (occurrence: None)
  Receive Date: 20110908
  Receipt Date: 20110824
  Transmission Date: 20111222
  Serious: Yes (Other)
  Sender: FDA-Public Use
  Company Number: GB-WATSON-2011-13950

PATIENT
  Age: 29 Year
  Sex: Male

DRUGS (3)
  1. BENZOPHENONE [Suspect]
     Indication: PRODUCT USED FOR UNKNOWN INDICATION
  2. METHYLENEDIOXYMETHAMPHETAMINE [Suspect]
     Indication: PRODUCT USED FOR UNKNOWN INDICATION
  3. DIPHENHYDRAMINE HCL [Suspect]
     Indication: PRODUCT USED FOR UNKNOWN INDICATION
     Dosage: UNKNOWN
     Route: 065

REACTIONS (4)
  - HALLUCINATION, VISUAL [None]
  - ANXIETY [None]
  - INSOMNIA [None]
  - AGITATION [None]
